FAERS Safety Report 7033566-6 (Version None)
Quarter: 2010Q4

REPORT INFORMATION
  Report Type: 
  Country: None (occurrence: None)
  Receive Date: 20101007
  Receipt Date: 20100924
  Transmission Date: 20110411
  Serious: Yes (Other)
  Sender: FDA-Public Use
  Company Number: PHHY2010TW17668

PATIENT
  Sex: Male

DRUGS (1)
  1. GLEEVEC [Suspect]
     Indication: GASTROINTESTINAL STROMAL TUMOUR
     Dosage: 200 MG, UNK
     Route: 048
     Dates: start: 20081028

REACTIONS (9)
  - ASTHENIA [None]
  - DIABETES MELLITUS [None]
  - FACE OEDEMA [None]
  - FATIGUE [None]
  - GOUT [None]
  - HAEMOGLOBIN DECREASED [None]
  - PAIN IN EXTREMITY [None]
  - PYREXIA [None]
  - WHITE BLOOD CELL COUNT ABNORMAL [None]
